FAERS Safety Report 20475557 (Version 1)
Quarter: 2022Q1

REPORT INFORMATION
  Report Type: Spontaneous
  Country: US (occurrence: US)
  Receive Date: 20220215
  Receipt Date: 20220215
  Transmission Date: 20220424
  Serious: No
  Sender: FDA-Public Use
  Company Number: US-PFIZER INC-202101621394

PATIENT
  Age: 68 Year
  Sex: Female

DRUGS (2)
  1. IBRANCE [Suspect]
     Active Substance: PALBOCICLIB
     Dosage: 125 MG,UNK
  2. FASLODEX [Concomitant]
     Active Substance: FULVESTRANT
     Dosage: FIRST DOSE,UNK

REACTIONS (4)
  - Nausea [Unknown]
  - Initial insomnia [Unknown]
  - Abdominal distension [Recovered/Resolved]
  - Cognitive disorder [Unknown]
